FAERS Safety Report 13746825 (Version 1)
Quarter: 2017Q3

REPORT INFORMATION
  Report Type: Spontaneous
  Country: NL (occurrence: NL)
  Receive Date: 20170712
  Receipt Date: 20170712
  Transmission Date: 20171127
  Serious: Yes (Hospitalization)
  Sender: FDA-Public Use
  Company Number: NL-BAYER-2017-131014

PATIENT
  Age: 44 Year
  Sex: Male

DRUGS (2)
  1. GADOVIST [Suspect]
     Active Substance: GADOBUTROL
     Indication: INFECTION PARASITIC
  2. GADOVIST [Suspect]
     Active Substance: GADOBUTROL
     Indication: VASCULITIS CEREBRAL
     Dosage: 7.5 ML, ONCE
     Route: 042
     Dates: start: 20170706

REACTIONS (3)
  - Nausea [Recovered/Resolved]
  - Urinary incontinence [Recovered/Resolved]
  - Loss of consciousness [Recovered/Resolved]

NARRATIVE: CASE EVENT DATE: 20170706
